FAERS Safety Report 15837749 (Version 6)
Quarter: 2022Q2

REPORT INFORMATION
  Report Type: Spontaneous
  Country: US (occurrence: US)
  Receive Date: 20190117
  Receipt Date: 20220409
  Transmission Date: 20220721
  Serious: No
  Sender: FDA-Public Use
  Company Number: US-SA-2019SA012161

PATIENT
  Age: 63 Year
  Sex: Female

DRUGS (4)
  1. KEVZARA [Suspect]
     Active Substance: SARILUMAB
     Indication: Rheumatoid arthritis
     Dosage: 200 MG, QOW
     Route: 058
     Dates: start: 20180904
  2. KEVZARA [Suspect]
     Active Substance: SARILUMAB
     Dosage: 200 MG, QOW
     Route: 058
     Dates: start: 201901
  3. SYNTHROID [Concomitant]
     Active Substance: LEVOTHYROXINE SODIUM
     Dosage: UNK
  4. CLOBETASOL [Concomitant]
     Active Substance: CLOBETASOL
     Dosage: UNK

REACTIONS (6)
  - Joint swelling [Not Recovered/Not Resolved]
  - Condition aggravated [Not Recovered/Not Resolved]
  - Arthralgia [Not Recovered/Not Resolved]
  - Injection site reaction [Unknown]
  - Condition aggravated [Not Recovered/Not Resolved]
  - Arthralgia [Unknown]

NARRATIVE: CASE EVENT DATE: 20190501
